FAERS Safety Report 13482799 (Version 1)
Quarter: 2017Q2

REPORT INFORMATION
  Report Type: Spontaneous
  Country: US (occurrence: US)
  Receive Date: 20170426
  Receipt Date: 20170426
  Transmission Date: 20170830
  Serious: Yes (Death)
  Sender: FDA-Public Use
  Company Number: US-ROCHE-1925350

PATIENT
  Age: 47 Year
  Sex: Female

DRUGS (2)
  1. RITUXAN [Suspect]
     Active Substance: RITUXIMAB
     Dosage: INFUSE 570MG BY IV EVERY 21 DAYS
     Route: 042
     Dates: start: 20170411
  2. RITUXAN [Suspect]
     Active Substance: RITUXIMAB
     Indication: B-CELL LYMPHOMA
     Dosage: INFUSE 570MG BY IV EVERY 21 DAYS
     Route: 042
     Dates: start: 20170411

REACTIONS (1)
  - Death [Fatal]

NARRATIVE: CASE EVENT DATE: 20170416
